FAERS Safety Report 6163367-2 (Version None)
Quarter: 2009Q2

REPORT INFORMATION
  Report Type: 
  Country: None (occurrence: None)
  Receive Date: 20090422
  Receipt Date: 20090417
  Transmission Date: 20091009
  Serious: Yes (Hospitalization)
  Sender: FDA-Public Use
  Company Number: JP-ASTRAZENECA-2009AP02268

PATIENT
  Age: 59 Year
  Sex: Male
  Weight: 81 kg

DRUGS (7)
  1. CRESTOR [Suspect]
     Indication: HYPERLIPIDAEMIA
     Route: 048
     Dates: start: 20081110
  2. OLMETEC [Suspect]
     Indication: HYPERTENSION
     Route: 048
     Dates: start: 20081110
  3. BASEN OD [Suspect]
     Indication: DIABETES MELLITUS
     Route: 048
     Dates: start: 20070101
  4. ZYLORIC [Concomitant]
     Indication: HYPERURICAEMIA
     Route: 048
     Dates: start: 20050101
  5. ADALAT CC [Concomitant]
     Indication: HYPERTENSION
     Route: 048
     Dates: start: 20080201
  6. LIVALO [Concomitant]
     Indication: HYPERCHOLESTEROLAEMIA
     Dates: start: 20070101, end: 20081109
  7. NU-LOTAN [Concomitant]
     Indication: HYPERTENSION
     Dates: start: 20050101, end: 20081109

REACTIONS (1)
  - HEPATITIS FULMINANT [None]
